FAERS Safety Report 4668989-3 (Version None)
Quarter: 2005Q2

REPORT INFORMATION
  Report Type: 
  Country: None (occurrence: None)
  Receive Date: 20050523
  Receipt Date: 20050512
  Transmission Date: 20051028
  Serious: Yes (Hospitalization)
  Sender: FDA-Public Use
  Company Number: CH-GLAXOSMITHKLINE-B0381671A

PATIENT
  Age: 33 Year
  Sex: Male
  Weight: 110 kg

DRUGS (4)
  1. AUGMENTIN '125' [Suspect]
     Dosage: 1G TWICE PER DAY
     Route: 048
     Dates: start: 20050327, end: 20050401
  2. VIT C TAB [Concomitant]
     Dosage: 1U PER DAY
     Route: 048
  3. SEROPRAM [Concomitant]
  4. COENZYME Q10 [Concomitant]
     Route: 048

REACTIONS (9)
  - ANAPHYLACTIC REACTION [None]
  - EXANTHEM [None]
  - HYPOTENSION [None]
  - ILL-DEFINED DISORDER [None]
  - PYREXIA [None]
  - RASH PRURITIC [None]
  - SHOCK [None]
  - TACHYCARDIA [None]
  - VERTIGO [None]
